FAERS Safety Report 13335673 (Version 1)
Quarter: 2017Q1

REPORT INFORMATION
  Report Type: Spontaneous
  Country: None (occurrence: SE)
  Receive Date: 20170314
  Receipt Date: 20170314
  Transmission Date: 20170428
  Serious: Yes (Other)
  Sender: FDA-Public Use
  Company Number: SE-MERZ NORTH AMERICA, INC.-17MRZ-00068

PATIENT
  Age: 56 Year
  Sex: Female

DRUGS (3)
  1. CARBOCAINE [Suspect]
     Active Substance: MEPIVACAINE HYDROCHLORIDE
     Indication: ANALGESIC THERAPY
     Dosage: 10MG/ML
     Dates: start: 20170222, end: 20170222
  2. ASCLERA [Suspect]
     Active Substance: POLIDOCANOL
     Indication: VARICOSE VEIN
     Dosage: 4ML
     Route: 042
     Dates: start: 20170222, end: 20170222
  3. ASCLERA [Suspect]
     Active Substance: POLIDOCANOL
     Indication: VARICOSE VEIN
     Dosage: 4ML
     Route: 042
     Dates: start: 20170222, end: 20170222

REACTIONS (1)
  - Bradycardia [Recovered/Resolved]

NARRATIVE: CASE EVENT DATE: 20170222
